FAERS Safety Report 15565484 (Version 1)
Quarter: 2018Q4

REPORT INFORMATION
  Report Type: Report from Study
  Country: GB (occurrence: GB)
  Receive Date: 20181030
  Receipt Date: 20181030
  Transmission Date: 20190205
  Serious: Yes (Death, Life-Threatening, Hospitalization, Other)
  Sender: FDA-Public Use
  Company Number: GB-ROCHE-1808111

PATIENT
  Age: 65 Year
  Sex: Female

DRUGS (3)
  1. CETRIZINE [Concomitant]
     Active Substance: CETIRIZINE HYDROCHLORIDE
  2. ESBRIET [Suspect]
     Active Substance: PIRFENIDONE
     Route: 048
  3. ESBRIET [Suspect]
     Active Substance: PIRFENIDONE
     Indication: IDIOPATHIC PULMONARY FIBROSIS
     Route: 048
     Dates: start: 20141118

REACTIONS (20)
  - Feeling abnormal [Recovering/Resolving]
  - Gastrooesophageal reflux disease [Recovering/Resolving]
  - Abdominal distension [Recovering/Resolving]
  - Depression [Recovering/Resolving]
  - Heart rate increased [Unknown]
  - Malaise [Recovering/Resolving]
  - Extrasystoles [Unknown]
  - Lung neoplasm malignant [Unknown]
  - Death [Fatal]
  - Lung carcinoma cell type unspecified recurrent [Unknown]
  - Neoplasm malignant [Unknown]
  - Salmonellosis [Unknown]
  - Cough [Unknown]
  - Colitis [Unknown]
  - Gastroenteritis salmonella [Unknown]
  - Decreased appetite [Unknown]
  - Dyspnoea [Unknown]
  - Rash [Recovered/Resolved]
  - Dyspepsia [Unknown]
  - Nausea [Not Recovered/Not Resolved]

NARRATIVE: CASE EVENT DATE: 201504
